FAERS Safety Report 18515151 (Version 1)
Quarter: 2020Q4

REPORT INFORMATION
  Report Type: Spontaneous
  Country: US (occurrence: US)
  Receive Date: 20201118
  Receipt Date: 20201118
  Transmission Date: 20210114
  Serious: Yes (Other)
  Sender: FDA-Public Use
  Company Number: US-CELLTRION INC.-2020US031497

PATIENT

DRUGS (1)
  1. INFLECTRA [Suspect]
     Active Substance: INFLIXIMAB-DYYB
     Indication: PRODUCT USED FOR UNKNOWN INDICATION

REACTIONS (10)
  - Gastrointestinal haemorrhage [Unknown]
  - Inflammation [Unknown]
  - Therapeutic response shortened [Unknown]
  - Blood test abnormal [Unknown]
  - Feeling abnormal [Unknown]
  - Ulcer [Unknown]
  - Product dose omission issue [Unknown]
  - Crying [Unknown]
  - Pain [Unknown]
  - Condition aggravated [Unknown]
